FAERS Safety Report 24961503 (Version 1)
Quarter: 2025Q1

REPORT INFORMATION
  Report Type: Report from Study
  Country: CA (occurrence: CA)
  Receive Date: 20250212
  Receipt Date: 20250212
  Transmission Date: 20250408
  Serious: Yes (Other)
  Sender: SANDOZ
  Company Number: CA-SANDOZ-SDZ2025CA004336

PATIENT
  Sex: Female

DRUGS (2)
  1. HYRIMOZ [Suspect]
     Active Substance: ADALIMUMAB-ADAZ
     Dosage: 40 MG, Q2W, 40 MG / 0.8 ML (PFS)
     Route: 058
     Dates: start: 20240628
  2. HYRIMOZ [Suspect]
     Active Substance: ADALIMUMAB-ADAZ
     Indication: Ankylosing spondylitis
     Dosage: 40 MG, Q2W, 40 MG / 0.8 ML (PEN)
     Route: 058
     Dates: start: 20240628

REACTIONS (4)
  - Immunodeficiency [Unknown]
  - Adverse drug reaction [Unknown]
  - Oral herpes [Unknown]
  - Pyrexia [Unknown]
